FAERS Safety Report 5745403-8 (Version None)
Quarter: 2008Q2

REPORT INFORMATION
  Report Type: 
  Country: None (occurrence: None)
  Receive Date: 20080521
  Receipt Date: 20080513
  Transmission Date: 20081010
  Serious: Yes (Death)
  Sender: FDA-Public Use
  Company Number: FR-BAXTER-2008BH003886

PATIENT
  Age: 74 Year
  Sex: Female

DRUGS (11)
  1. EXTRANEAL [Suspect]
     Indication: PERITONEAL DIALYSIS
     Route: 033
     Dates: start: 20070822
  2. PHYSIONEAL, UNSPECIFIED PRODUCT VIAFLEX [Concomitant]
     Indication: PERITONEAL DIALYSIS
     Route: 033
     Dates: start: 20070822
  3. LASILIX [Concomitant]
  4. COZAAR [Concomitant]
  5. TARDYFERON /GFR/ [Concomitant]
  6. PREVISCAN [Concomitant]
  7. AMLOR [Concomitant]
  8. SECTRAL [Concomitant]
  9. CALCIDIA [Concomitant]
  10. UN-ALFA [Concomitant]
  11. NUTRINEAL [Concomitant]
     Indication: PERITONEAL DIALYSIS
     Dates: start: 20070822

REACTIONS (6)
  - DEATH [None]
  - DEVICE INTERACTION [None]
  - HYPOGLYCAEMIC COMA [None]
  - LUNG INFECTION [None]
  - PULMONARY OEDEMA [None]
  - URINARY TRACT INFECTION [None]
